FAERS Safety Report 23129871 (Version 1)
Quarter: 2023Q4

REPORT INFORMATION
  Report Type: Spontaneous
  Country: BR (occurrence: None)
  Receive Date: 20231031
  Receipt Date: 20231031
  Transmission Date: 20240109
  Serious: Yes (Hospitalization)
  Sender: FDA-Public Use
  Company Number: 2023A245559

PATIENT
  Age: 18008 Day
  Sex: Female
  Weight: 48 kg

DRUGS (10)
  1. IRESSA [Suspect]
     Active Substance: GEFITINIB
     Indication: Lung neoplasm malignant
     Dosage: A TABLET
     Route: 048
     Dates: start: 202307
  2. ENALAPRIL [Concomitant]
     Active Substance: ENALAPRIL
     Indication: Blood pressure measurement
     Dosage: A TABLET
  3. FUROSEMIDE [Concomitant]
     Active Substance: FUROSEMIDE
     Indication: Blood pressure measurement
     Dosage: A TABLET
  4. DIPYRONE\PROMETHAZINE HYDROCHLORIDE [Concomitant]
     Active Substance: DIPYRONE\PROMETHAZINE HYDROCHLORIDE
     Indication: Pain
     Dosage: A TABLET1.0MG AS REQUIRED
  5. EMETINE HYDROCHLORIDE/OXILOFRINE HYDROCHLORIDE/NORMETHADONE HYDROCHLOR [Concomitant]
     Indication: Pain
     Dosage: TWO TABLETS
  6. DIPYRONE [Concomitant]
     Active Substance: DIPYRONE
     Indication: Pain
     Dosage: A TABLET500.0MG AS REQUIRED
  7. IRON [Concomitant]
     Active Substance: IRON
     Indication: Hypovitaminosis
  8. CALCIUM PANTOTHENATE\CYANOCOBALAMIN\NIACINAMIDE\PYRIDOXINE HYDROCHLORI [Concomitant]
     Active Substance: CALCIUM PANTOTHENATE\CYANOCOBALAMIN\NIACINAMIDE\PYRIDOXINE HYDROCHLORIDE\RIBOFLAVIN\THIAMINE MONONIT
     Indication: Hypovitaminosis
  9. VALERIANA JATAMANSI/FERROUS SULFATE/SARACA INDICA/RAUVOLFIA SERPENTINA [Concomitant]
     Indication: Hypovitaminosis
  10. ZOLEDRONIC ACID [Concomitant]
     Active Substance: ZOLEDRONIC ACID
     Indication: Lung neoplasm malignant
     Dosage: AN APPLICATION

REACTIONS (3)
  - Headache [Recovered/Resolved]
  - Brain oedema [Recovered/Resolved]
  - Myalgia [Unknown]

NARRATIVE: CASE EVENT DATE: 20231022
